FAERS Safety Report 9393306 (Version 1)
Quarter: 2013Q3

REPORT INFORMATION
  Report Type: Spontaneous
  Country: IT (occurrence: IT)
  Receive Date: 20130710
  Receipt Date: 20130710
  Transmission Date: 20140515
  Serious: Yes (Other)
  Sender: FDA-Public Use
  Company Number: IT-MYLANLABS-2013S1014633

PATIENT
  Age: 63 Year
  Sex: Male

DRUGS (3)
  1. PACLITAXEL [Suspect]
     Indication: SQUAMOUS CELL CARCINOMA OF SKIN
     Dosage: 80 MG/M2
     Route: 065
     Dates: start: 201012
  2. CETUXIMAB [Suspect]
     Indication: SQUAMOUS CELL CARCINOMA OF SKIN
     Route: 065
     Dates: start: 201012
  3. CETUXIMAB [Suspect]
     Indication: SQUAMOUS CELL CARCINOMA OF SKIN
     Route: 065
     Dates: end: 201112

REACTIONS (3)
  - Neuropathy peripheral [Unknown]
  - Dermatitis acneiform [Unknown]
  - Off label use [Unknown]
